FAERS Safety Report 5202373-9 (Version None)
Quarter: 2007Q1

REPORT INFORMATION
  Report Type: 
  Country: None (occurrence: None)
  Receive Date: 20070109
  Receipt Date: 20070103
  Transmission Date: 20070707
  Serious: Yes (Death, Other)
  Sender: FDA-Public Use
  Company Number: PHBS2007ES00505

PATIENT
  Age: 66 Year
  Sex: Male

DRUGS (5)
  1. IMATINIB MESYLATE [Suspect]
     Indication: CHRONIC MYELOID LEUKAEMIA
     Dosage: 100 TO 400 MG/DAY
     Route: 065
     Dates: start: 20020201
  2. IMATINIB MESYLATE [Suspect]
     Dosage: 600 MG/DAY
     Route: 065
     Dates: start: 20020301
  3. IMATINIB MESYLATE [Suspect]
     Dosage: 400 MG/DAY
     Route: 065
  4. IMATINIB MESYLATE [Suspect]
     Dosage: 100 TO 800 MG/DAY
     Route: 065
  5. HYDROXYUREA [Concomitant]
     Dosage: 2500 MG/DAY
     Route: 065

REACTIONS (14)
  - BLAST CRISIS IN MYELOGENOUS LEUKAEMIA [None]
  - DISEASE PROGRESSION [None]
  - EPIDERMAL NECROSIS [None]
  - EXCESSIVE GRANULATION TISSUE [None]
  - HYPERPLASIA [None]
  - LIVIDITY [None]
  - LUNG INFILTRATION [None]
  - OEDEMA PERIPHERAL [None]
  - PARAKERATOSIS [None]
  - PRURITUS [None]
  - RASH ERYTHEMATOUS [None]
  - SKIN EXFOLIATION [None]
  - SKIN OEDEMA [None]
  - TOXIC SKIN ERUPTION [None]
